FAERS Safety Report 17091404 (Version 1)
Quarter: 2019Q4

REPORT INFORMATION
  Report Type: Spontaneous
  Country: US (occurrence: US)
  Receive Date: 20191129
  Receipt Date: 20191129
  Transmission Date: 20200122
  Serious: No
  Sender: FDA-Public Use
  Company Number: US-ASTRAZENECA-2019SF57675

PATIENT
  Age: 25958 Day
  Sex: Female
  Weight: 97.5 kg

DRUGS (1)
  1. FASENRA [Suspect]
     Active Substance: BENRALIZUMAB
     Indication: LUNG DISORDER
     Dosage: UNKNOWN
     Route: 058
     Dates: start: 20191030

REACTIONS (6)
  - Glossitis [Not Recovered/Not Resolved]
  - Dysphagia [Unknown]
  - Tongue biting [Not Recovered/Not Resolved]
  - Oropharyngeal discomfort [Not Recovered/Not Resolved]
  - Chest discomfort [Not Recovered/Not Resolved]
  - Blood pressure decreased [Not Recovered/Not Resolved]

NARRATIVE: CASE EVENT DATE: 20191031
